FAERS Safety Report 19251335 (Version 4)
Quarter: 2022Q1

REPORT INFORMATION
  Report Type: Report from Study
  Country: US (occurrence: US)
  Receive Date: 20210513
  Receipt Date: 20220314
  Transmission Date: 20220423
  Serious: Yes (Death, Hospitalization, Other)
  Sender: FDA-Public Use
  Company Number: US-ACADIA PHARMACEUTICALS INC.-ACA-2021-PIM-001530

PATIENT
  Age: 69 Year
  Sex: Male

DRUGS (8)
  1. NUPLAZID [Suspect]
     Active Substance: PIMAVANSERIN TARTRATE
     Indication: Parkinson^s disease psychosis
     Dosage: 34 MILLIGRAM, QD
     Route: 048
     Dates: start: 20210318, end: 2021
  2. NUPLAZID [Suspect]
     Active Substance: PIMAVANSERIN TARTRATE
     Indication: Hallucination
     Dosage: 34 MILLIGRAM, QD
     Route: 048
     Dates: start: 20210422
  3. NUPLAZID [Suspect]
     Active Substance: PIMAVANSERIN TARTRATE
     Indication: Delusion
     Dosage: 34 MILLIGRAM, QD THROUGH A NASOGASTRIC TUBE
  4. NUPLAZID [Suspect]
     Active Substance: PIMAVANSERIN TARTRATE
     Dosage: 34 MILLIGRAM, QD
     Route: 048
     Dates: end: 20210904
  5. SINEMET [Concomitant]
     Active Substance: CARBIDOPA\LEVODOPA
  6. SEROQUEL [Concomitant]
     Active Substance: QUETIAPINE FUMARATE
  7. NAMENDA [Concomitant]
     Active Substance: MEMANTINE HYDROCHLORIDE
  8. CELEBREX [Concomitant]
     Active Substance: CELECOXIB

REACTIONS (7)
  - Sepsis [Recovered/Resolved]
  - Gallbladder disorder [Unknown]
  - Disease progression [Unknown]
  - Product use complaint [Unknown]
  - Incorrect route of product administration [Unknown]
  - Dysphagia [Unknown]
  - Hallucination [Unknown]

NARRATIVE: CASE EVENT DATE: 20210401
